FAERS Safety Report 19135121 (Version 1)
Quarter: 2021Q2

REPORT INFORMATION
  Report Type: Spontaneous
  Country: JP (occurrence: JP)
  Receive Date: 20210414
  Receipt Date: 20210414
  Transmission Date: 20210717
  Serious: Yes (Death, Other)
  Sender: FDA-Public Use
  Company Number: JP-UCBSA-2021016445

PATIENT
  Age: 8 Decade
  Sex: Male

DRUGS (1)
  1. NEUPRO [Suspect]
     Active Substance: ROTIGOTINE
     Indication: PARKINSON^S DISEASE
     Dosage: 1 MG/24 HOURS

REACTIONS (7)
  - Hallucination [Unknown]
  - Libido increased [Unknown]
  - Pleurothotonus [Unknown]
  - Treatment noncompliance [Unknown]
  - Product administered at inappropriate site [Unknown]
  - Death [Fatal]
  - Nausea [Recovered/Resolved]
